FAERS Safety Report 9714116 (Version 1)
Quarter: 2013Q4

REPORT INFORMATION
  Report Type: Spontaneous
  Country: US (occurrence: US)
  Receive Date: 20131126
  Receipt Date: 20131126
  Transmission Date: 20140711
  Serious: No
  Sender: FDA-Public Use
  Company Number: US-GILEAD-2008-0018954

PATIENT
  Age: 81 Year
  Sex: Female
  Weight: 109.77 kg

DRUGS (10)
  1. LETAIRIS [Suspect]
     Indication: PULMONARY ARTERIAL HYPERTENSION
     Route: 048
     Dates: start: 20080822
  2. NORVASC [Concomitant]
  3. CLONIDINE [Concomitant]
  4. ATENOLOL [Concomitant]
  5. LISINOPRIL [Concomitant]
  6. ASPIRIN [Concomitant]
  7. CYMBALTA [Concomitant]
  8. ALLOPURINOL [Concomitant]
  9. VYTORIN [Concomitant]
  10. VITAMIN C [Concomitant]

REACTIONS (1)
  - Dyspnoea [None]
